FAERS Safety Report 22932640 (Version 2)
Quarter: 2024Q1

REPORT INFORMATION
  Report Type: Spontaneous
  Country: CA (occurrence: CA)
  Receive Date: 20230912
  Receipt Date: 20240328
  Transmission Date: 20240409
  Serious: Yes (Hospitalization, Other)
  Sender: FDA-Public Use
  Company Number: CA-SANDOZ-SDZ2023CA026194

PATIENT
  Sex: Male

DRUGS (7)
  1. CYCLOSPORINE [Suspect]
     Active Substance: CYCLOSPORINE
     Indication: Chronic spontaneous urticaria
     Dosage: 50 MG, BID
     Route: 048
     Dates: start: 2022
  2. MONTELUKAST [Suspect]
     Active Substance: MONTELUKAST SODIUM
     Indication: Chronic spontaneous urticaria
     Dosage: 10 MG, QD
     Route: 048
     Dates: start: 202009
  3. MONTELUKAST SODIUM [Suspect]
     Active Substance: MONTELUKAST SODIUM
     Indication: Chronic spontaneous urticaria
     Dosage: 10 MG, QD
     Route: 048
  4. CETIRIZINE HYDROCHLORIDE AND PSEUDOEPHEDRINE HYDROCHLORIDE [Concomitant]
     Active Substance: CETIRIZINE HYDROCHLORIDE\PSEUDOEPHEDRINE HYDROCHLORIDE
     Indication: Chronic spontaneous urticaria
     Dosage: UNK, BID
     Route: 048
  5. DIPHENHYDRAMINE [Concomitant]
     Active Substance: DIPHENHYDRAMINE
     Indication: Chronic spontaneous urticaria
     Dosage: UNK UNK, PRN, 50 MG,DOSE -1
     Route: 048
     Dates: start: 2020
  6. PREDNISONE [Concomitant]
     Active Substance: PREDNISONE
     Indication: Chronic spontaneous urticaria
     Dosage: UNK UNK, QD, 5 MG,DOSE-1
     Route: 048
     Dates: start: 202209, end: 202212
  7. Reactine [Concomitant]
     Indication: Chronic spontaneous urticaria
     Dosage: UNK UNK, BID ,20 MG, DOSE-1
     Route: 048
     Dates: start: 202009

REACTIONS (6)
  - Urticaria [Unknown]
  - Oedema [Unknown]
  - Pruritus [Unknown]
  - Oral mucosal erythema [Unknown]
  - Pain [Unknown]
  - Insomnia [Unknown]
